FAERS Safety Report 9799577 (Version 1)
Quarter: 2014Q1

REPORT INFORMATION
  Report Type: Spontaneous
  Country: US (occurrence: US)
  Receive Date: 20140106
  Receipt Date: 20140106
  Transmission Date: 20141002
  Serious: No
  Sender: FDA-Public Use
  Company Number: US-GILEAD-2010-0031395

PATIENT
  Age: 71 Year
  Sex: Female
  Weight: 78.92 kg

DRUGS (13)
  1. LETAIRIS [Suspect]
     Indication: PULMONARY ARTERIAL HYPERTENSION
     Route: 048
     Dates: start: 20100325
  2. REVATIO [Concomitant]
  3. ZOCOR [Concomitant]
  4. COREG [Concomitant]
  5. LASIX [Concomitant]
  6. AMLODIPINE BESYLATE [Concomitant]
  7. ACCUPRIL [Concomitant]
  8. PLAVIX [Concomitant]
  9. SPIRIVA [Concomitant]
  10. FLONASE [Concomitant]
  11. ASPIRIN [Concomitant]
  12. FOSAMAX PLUS D [Concomitant]
  13. CALTRATE [Concomitant]

REACTIONS (1)
  - Malaise [Unknown]
